FAERS Safety Report 14343559 (Version 1)
Quarter: 2017Q4

REPORT INFORMATION
  Report Type: Spontaneous
  Country: US (occurrence: US)
  Receive Date: 20171229
  Receipt Date: 20171229
  Transmission Date: 20180321
  Serious: No
  Sender: FDA-Public Use
  Company Number: None

PATIENT
  Sex: Female

DRUGS (1)
  1. IBRANCE [Suspect]
     Active Substance: PALBOCICLIB
     Indication: BREAST CANCER
     Dosage: 125 MG DAILY FOR 21 DAYS ON, 7 DAYS OFF BY MOUTH
     Route: 048
     Dates: start: 20171107, end: 20171211

REACTIONS (3)
  - Vaginal haemorrhage [None]
  - Neck pain [None]
  - Musculoskeletal pain [None]
